FAERS Safety Report 8763887 (Version 2)
Quarter: 2012Q4

REPORT INFORMATION
  Report Type: Report from Study
  Country: FR (occurrence: FR)
  Receive Date: 20120831
  Receipt Date: 20120910
  Transmission Date: 20130627
  Serious: Yes (Hospitalization)
  Sender: FDA-Public Use
  Company Number: FR-JNJFOC-20120812712

PATIENT
  Age: 17 Year
  Sex: Female
  Weight: 41.7 kg

DRUGS (4)
  1. REMICADE [Suspect]
     Indication: CROHN^S DISEASE
     Route: 042
     Dates: start: 201203, end: 20120402
  2. REMICADE [Suspect]
     Indication: CROHN^S DISEASE
     Route: 042
     Dates: start: 20110407
  3. REMICADE [Suspect]
     Indication: CROHN^S DISEASE
     Route: 042
     Dates: start: 20080314
  4. PREDNISONE [Concomitant]
     Indication: CROHN^S DISEASE

REACTIONS (1)
  - Crohn^s disease [Recovered/Resolved]
